FAERS Safety Report 6956644-6 (Version None)
Quarter: 2010Q3

REPORT INFORMATION
  Report Type: 
  Country: None (occurrence: None)
  Receive Date: 20100830
  Receipt Date: 20100818
  Transmission Date: 20110219
  Serious: Yes (Other)
  Sender: FDA-Public Use
  Company Number: US-PFIZER INC-2010064346

PATIENT
  Sex: Female
  Weight: 68 kg

DRUGS (6)
  1. LYRICA [Suspect]
     Indication: NEUROPATHY PERIPHERAL
     Dosage: 100MG 2 TO 3 TIMES DAILY
     Route: 048
  2. LYRICA [Suspect]
     Indication: NEURALGIA
  3. WARFARIN [Concomitant]
     Indication: CARDIAC DISORDER
     Dosage: 5 MG, 1X/DAY
     Route: 048
  4. LISINOPRIL [Concomitant]
     Indication: CARDIAC DISORDER
     Dosage: 20 MG, 1X/DAY
     Route: 048
  5. METOPROLOL [Concomitant]
     Indication: CARDIAC DISORDER
     Dosage: 25 MG, 1X/DAY
     Route: 048
  6. SIMVASTATIN [Concomitant]
     Dosage: 10 MG, 1X/DAY
     Route: 048

REACTIONS (6)
  - AMNESIA [None]
  - CONSTIPATION [None]
  - DISTURBANCE IN ATTENTION [None]
  - SPEECH DISORDER [None]
  - VISION BLURRED [None]
  - WEIGHT INCREASED [None]
